FAERS Safety Report 10594947 (Version 1)
Quarter: 2014Q4

REPORT INFORMATION
  Report Type: Report from Study
  Country: US (occurrence: US)
  Receive Date: 20141120
  Receipt Date: 20141120
  Transmission Date: 20150529
  Serious: Yes (Hospitalization)
  Sender: FDA-Public Use
  Company Number: US-BIOGENIDEC-2014BI119780

PATIENT
  Age: 52 Year
  Sex: Female

DRUGS (1)
  1. TYSABRI [Suspect]
     Active Substance: NATALIZUMAB
     Indication: MULTIPLE SCLEROSIS
     Route: 042
     Dates: start: 20120802, end: 20140218

REACTIONS (10)
  - Visual impairment [Recovered/Resolved]
  - Vomiting [Recovered/Resolved]
  - Small intestinal obstruction [Unknown]
  - Pneumonia [Recovered/Resolved]
  - Superior mesenteric artery syndrome [Unknown]
  - Nausea [Recovered/Resolved]
  - Abnormal loss of weight [Recovered/Resolved]
  - Gallbladder disorder [Unknown]
  - Headache [Recovered/Resolved]
  - Staphylococcal infection [Recovered/Resolved]

NARRATIVE: CASE EVENT DATE: 201402
